FAERS Safety Report 8556134-3 (Version None)
Quarter: 2012Q3

REPORT INFORMATION
  Report Type: 
  Country: None (occurrence: None)
  Receive Date: 20120801
  Receipt Date: 20120725
  Transmission Date: 20120928
  Serious: Yes (Hospitalization)
  Sender: FDA-Public Use
  Company Number: US-SANOFI-AVENTIS-2012SA029821

PATIENT
  Age: 73 Year
  Sex: Female

DRUGS (3)
  1. SOLOSTAR [Suspect]
  2. APIDRA SOLOSTAR [Suspect]
     Dosage: SLIDING SCALE: 1 TO 5 UNITS 3-4 TIMES DAILY
     Route: 058
  3. LANTUS [Suspect]
     Route: 058

REACTIONS (4)
  - KIDNEY INFECTION [None]
  - BLOOD GLUCOSE INCREASED [None]
  - BLOOD GLUCOSE DECREASED [None]
  - CONVULSION [None]
